FAERS Safety Report 13257248 (Version 1)
Quarter: 2017Q1

REPORT INFORMATION
  Report Type: Spontaneous
  Country: BR (occurrence: BR)
  Receive Date: 20170221
  Receipt Date: 20170221
  Transmission Date: 20170428
  Serious: Yes (Hospitalization, Other)
  Sender: FDA-Public Use
  Company Number: BR-TEVA-741474ROM

PATIENT
  Age: 66 Year
  Sex: Male
  Weight: 66 kg

DRUGS (8)
  1. GEMZAR [Suspect]
     Active Substance: GEMCITABINE HYDROCHLORIDE
     Indication: NON-HODGKIN^S LYMPHOMA
     Route: 042
     Dates: start: 20160830, end: 20170131
  2. OMEPRAZOLE. [Concomitant]
     Active Substance: OMEPRAZOLE
  3. DECADRON [Concomitant]
     Active Substance: DEXAMETHASONE
  4. ZESTRIL [Suspect]
     Active Substance: LISINOPRIL
  5. TEVAOXALI [Suspect]
     Active Substance: OXALIPLATIN
     Indication: NON-HODGKIN^S LYMPHOMA
     Route: 042
     Dates: start: 20160830, end: 20170131
  6. TAMSULOSIN [Concomitant]
     Active Substance: TAMSULOSIN
  7. NUJOL [Concomitant]
  8. IMOSEC [Concomitant]
     Active Substance: LOPERAMIDE

REACTIONS (6)
  - Diarrhoea [Recovered/Resolved]
  - Enterocolitis [Recovered/Resolved]
  - Pancreatic enzymes increased [Recovered/Resolved]
  - C-reactive protein increased [Recovered/Resolved]
  - Leukocytosis [Recovered/Resolved]
  - Abdominal pain [Recovered/Resolved]

NARRATIVE: CASE EVENT DATE: 20161105
